FAERS Safety Report 5505644-1 (Version None)
Quarter: 2007Q4

REPORT INFORMATION
  Report Type: 
  Country: None (occurrence: None)
  Receive Date: 20071102
  Receipt Date: 20071023
  Transmission Date: 20080405
  Serious: Yes (Death, Hospitalization, Other)
  Sender: FDA-Public Use
  Company Number: JP-PFIZER INC-2007070584

PATIENT
  Sex: Female
  Weight: 56 kg

DRUGS (10)
  1. SOLU-MEDROL [Suspect]
     Indication: PYODERMA GANGRENOSUM
     Route: 050
  2. COLCHICINE [Concomitant]
     Route: 048
  3. LECTISOL [Concomitant]
     Route: 048
  4. STRONG NEO-MINOPHAGEN C [Concomitant]
     Route: 042
  5. FOSMICIN [Concomitant]
     Route: 042
  6. MAXIPIME [Concomitant]
     Route: 042
  7. FAMOTIDINE [Concomitant]
     Route: 042
  8. LASIX [Concomitant]
     Route: 042
     Dates: start: 20060822, end: 20060827
  9. RED BLOOD CELLS [Concomitant]
     Route: 042
     Dates: start: 20060412, end: 20060827
  10. PLATELETS [Concomitant]
     Route: 042
     Dates: start: 20060412, end: 20060827

REACTIONS (4)
  - GASTROINTESTINAL HAEMORRHAGE [None]
  - MULTI-ORGAN FAILURE [None]
  - PYODERMA GANGRENOSUM [None]
  - RHABDOMYOLYSIS [None]
